FAERS Safety Report 7236227-3 (Version None)
Quarter: 2011Q1

REPORT INFORMATION
  Report Type: 
  Country: None (occurrence: None)
  Receive Date: 20110120
  Receipt Date: 20110113
  Transmission Date: 20110831
  Serious: Yes (Hospitalization)
  Sender: FDA-Public Use
  Company Number: US-US-EMD SERONO, INC.-7036096

PATIENT
  Sex: Male

DRUGS (3)
  1. MULTI-VITAMIN [Concomitant]
     Indication: PROPHYLAXIS
  2. REBIF [Suspect]
     Indication: MULTIPLE SCLEROSIS
     Route: 058
     Dates: start: 20100513
  3. LEVAQUIN [Concomitant]
     Indication: KIDNEY INFECTION
     Route: 048

REACTIONS (2)
  - KIDNEY INFECTION [None]
  - HEART RATE INCREASED [None]
